FAERS Safety Report 8025326-4 (Version None)
Quarter: 2012Q1

REPORT INFORMATION
  Report Type: 
  Country: None (occurrence: None)
  Receive Date: 20120105
  Receipt Date: 20111229
  Transmission Date: 20120608
  Serious: Yes (Other)
  Sender: FDA-Public Use
  Company Number: US-PFIZER INC-2011255868

PATIENT
  Sex: Female
  Weight: 60.771 kg

DRUGS (8)
  1. AMBIEN [Concomitant]
     Indication: ANTIDEPRESSANT THERAPY
     Dosage: UNK
  2. PRISTIQ [Suspect]
     Indication: DEPRESSION
     Dosage: 100 MG, UNK
     Route: 048
     Dates: start: 20070101
  3. CYMBALTA [Suspect]
     Indication: DEPRESSION
     Dosage: UNK
  4. PROVIGIL [Concomitant]
     Indication: DISTURBANCE IN ATTENTION
     Dosage: UNK
  5. ESTRADIOL [Concomitant]
     Indication: HORMONE THERAPY
     Dosage: UNK
  6. ZOLOFT [Suspect]
     Indication: DEPRESSION
     Dosage: UNK
  7. XANAX [Concomitant]
     Indication: ANXIETY
     Dosage: UNK, DAILY
  8. CARISOPRODOL [Concomitant]
     Indication: MUSCLE RELAXANT THERAPY
     Dosage: UNK, 2X/DAILY

REACTIONS (17)
  - DIZZINESS [None]
  - DRUG INEFFECTIVE [None]
  - ARTHRITIS [None]
  - SNORING [None]
  - CONVULSION [None]
  - GAIT DISTURBANCE [None]
  - FALL [None]
  - DIARRHOEA [None]
  - FATIGUE [None]
  - LOSS OF CONSCIOUSNESS [None]
  - DISSOCIATIVE IDENTITY DISORDER [None]
  - DEPRESSION [None]
  - MEMORY IMPAIRMENT [None]
  - IRRITABLE BOWEL SYNDROME [None]
  - SLOW SPEECH [None]
  - MALAISE [None]
  - STRESS [None]
